FAERS Safety Report 8640276 (Version 2)
Quarter: 2013Q2

REPORT INFORMATION
  Report Type: Report from Study
  Country: US (occurrence: US)
  Receive Date: 20120628
  Receipt Date: 20130627
  Transmission Date: 20140414
  Serious: Yes (Other)
  Sender: FDA-Public Use
  Company Number: US-MYLANLABS-2012S1004164

PATIENT
  Age: 46 Year
  Sex: Female

DRUGS (8)
  1. CLOZAPINE TABLETS [Suspect]
     Dates: end: 20120302
  2. CLOZAPINE TABLETS [Suspect]
     Dates: start: 201203, end: 201204
  3. ATIVAN [Concomitant]
     Dosage: USING 1/2 OF A 0.5MG TABLET
  4. KLONOPIN [Concomitant]
  5. ZYPREXA [Concomitant]
  6. COGENTIN [Concomitant]
  7. LITHIUM [Concomitant]
  8. SEROQUEL [Concomitant]

REACTIONS (2)
  - Granulocytopenia [Not Recovered/Not Resolved]
  - Leukopenia [Recovered/Resolved]
